FAERS Safety Report 20207893 (Version 1)
Quarter: 2021Q4

REPORT INFORMATION
  Report Type: Spontaneous
  Country: US (occurrence: US)
  Receive Date: 20211220
  Receipt Date: 20211220
  Transmission Date: 20220303
  Serious: Yes (Other)
  Sender: FDA-Public Use
  Company Number: US-GILEAD-2021-0561905

PATIENT
  Sex: Female

DRUGS (7)
  1. VEKLURY [Suspect]
     Active Substance: REMDESIVIR
     Indication: COVID-19 pneumonia
     Dosage: FOR 6 DAYS
     Route: 065
  2. VITAMIN C [Concomitant]
     Active Substance: ASCORBIC ACID
     Dosage: HIGH DOSE
  3. VITAMIN D NOS [Concomitant]
     Active Substance: VITAMIN D NOS
  4. ZINC [Concomitant]
     Active Substance: ZINC
  5. ELDERBERRY ECHINACEA + OLIVE LEAF [Concomitant]
  6. MULLEIN [Concomitant]
  7. COLLOIDAL SILVER [Concomitant]
     Active Substance: SILVER
     Dosage: 10 PPM LIQUID

REACTIONS (4)
  - Drug ineffective [Unknown]
  - Oxygen saturation decreased [Unknown]
  - Palpitations [Unknown]
  - Lung disorder [Unknown]
